FAERS Safety Report 23424698 (Version 1)
Quarter: 2024Q1

REPORT INFORMATION
  Report Type: Report from Study
  Country: CA (occurrence: CA)
  Receive Date: 20240120
  Receipt Date: 20240120
  Transmission Date: 20240409
  Serious: Yes (Other)
  Sender: FDA-Public Use
  Company Number: None

PATIENT
  Age: 47 Year
  Sex: Female
  Weight: 54 kg

DRUGS (6)
  1. MYCOPHENOLATE MOFETIL [Suspect]
     Active Substance: MYCOPHENOLATE MOFETIL
     Indication: Interstitial lung disease
     Dosage: 5 EVERY 1 DAYS
     Route: 065
  2. CALCIUM [Concomitant]
     Active Substance: CALCIUM
  3. IRON [Concomitant]
     Active Substance: IRON
     Indication: Anaemia
  4. MAGNESIUM [Concomitant]
     Active Substance: MAGNESIUM
  5. PREDNISONE [Concomitant]
     Active Substance: PREDNISONE
     Route: 065
  6. PREVACID [Concomitant]
     Active Substance: LANSOPRAZOLE
     Route: 065

REACTIONS (2)
  - Off label use [Unknown]
  - Rheumatoid arthritis [Unknown]
